FAERS Safety Report 21028617 (Version 2)
Quarter: 2022Q4

REPORT INFORMATION
  Report Type: Other
  Country: TW (occurrence: None)
  Receive Date: 20220630
  Receipt Date: 20221205
  Transmission Date: 20230113
  Serious: Yes (Hospitalization, Other)
  Sender: FDA-Public Use
  Company Number: TW-ROCHE-3124018

PATIENT
  Age: 63 Year
  Sex: Male

DRUGS (3)
  1. AVASTIN [Suspect]
     Active Substance: BEVACIZUMAB
     Indication: Hepatocellular carcinoma
     Dosage: ONGOING
     Route: 065
     Dates: start: 202112
  2. TECENTRIQ [Suspect]
     Active Substance: ATEZOLIZUMAB
     Indication: Hepatocellular carcinoma
     Dosage: ONGOING
     Route: 065
     Dates: start: 202112
  3. NEXAVAR [Concomitant]
     Active Substance: SORAFENIB

REACTIONS (9)
  - Neoplasm progression [Unknown]
  - Decreased appetite [Unknown]
  - Vomiting [Unknown]
  - Coma [Unknown]
  - Rash [Unknown]
  - Mouth ulceration [Unknown]
  - Diarrhoea [Unknown]
  - Mental disorder [Unknown]
  - Coma hepatic [Unknown]

NARRATIVE: CASE EVENT DATE: 20220101
